FAERS Safety Report 4365006-X (Version None)
Quarter: 2004Q2

REPORT INFORMATION
  Report Type: 
  Country: None (occurrence: None)
  Receive Date: 20040521
  Receipt Date: 20040517
  Transmission Date: 20050107
  Serious: Yes (Hospitalization)
  Sender: FDA-Public Use
  Company Number: 2004208961US

PATIENT
  Age: 65 Year
  Sex: Female
  Weight: 99.8 kg

DRUGS (1)
  1. CELEBREX [Suspect]
     Indication: LIMB INJURY
     Dosage: 200 MG, QD, ORAL
     Route: 048

REACTIONS (7)
  - ARTHRITIS [None]
  - ARTHROPATHY [None]
  - CARDIAC FAILURE CONGESTIVE [None]
  - ERYTHEMA MULTIFORME [None]
  - OEDEMA PERIPHERAL [None]
  - SERUM SICKNESS [None]
  - URTICARIA [None]
